FAERS Safety Report 7298348-9 (Version None)
Quarter: 2011Q1

REPORT INFORMATION
  Report Type: 
  Country: None (occurrence: None)
  Receive Date: 20110217
  Receipt Date: 20110209
  Transmission Date: 20110831
  Serious: Yes (Hospitalization)
  Sender: FDA-Public Use
  Company Number: US-ALEXION-A201100114

PATIENT
  Sex: Female

DRUGS (2)
  1. SOLIRIS [Suspect]
     Dosage: 900 MG, Q2W
     Route: 042
  2. SOLIRIS [Suspect]
     Indication: PAROXYSMAL NOCTURNAL HAEMOGLOBINURIA
     Dosage: 600 MG, QW X4
     Route: 042
     Dates: start: 20071004

REACTIONS (5)
  - DEVICE RELATED INFECTION [None]
  - BLOOD COUNT ABNORMAL [None]
  - CHEST PAIN [None]
  - ENTEROCOCCAL BACTERAEMIA [None]
  - URINARY TRACT INFECTION [None]
